FAERS Safety Report 13096891 (Version 1)
Quarter: 2017Q1

REPORT INFORMATION
  Report Type: Spontaneous
  Country: US (occurrence: US)
  Receive Date: 20170109
  Receipt Date: 20170109
  Transmission Date: 20170428
  Serious: Yes (Other)
  Sender: FDA-Public Use
  Company Number: US-PFIZER INC-2017004765

PATIENT

DRUGS (1)
  1. PHYTOMENADIONE [Suspect]
     Active Substance: PHYTONADIONE
     Dosage: UNK

REACTIONS (2)
  - Reaction to drug excipients [Unknown]
  - Anaphylactic reaction [Unknown]
